FAERS Safety Report 16105656 (Version 1)
Quarter: 2019Q1

REPORT INFORMATION
  Report Type: Spontaneous
  Country: FR (occurrence: FR)
  Receive Date: 20190322
  Receipt Date: 20190322
  Transmission Date: 20190418
  Serious: Yes (Hospitalization)
  Sender: FDA-Public Use
  Company Number: FR-PFIZER INC-2019123566

PATIENT
  Age: 45 Year
  Sex: Male

DRUGS (5)
  1. IMATINIB MESYLATE. [Suspect]
     Active Substance: IMATINIB MESYLATE
     Indication: GASTROINTESTINAL STROMAL TUMOUR
     Dosage: UNK
     Route: 048
     Dates: start: 201711, end: 20180820
  2. SUTENT [Suspect]
     Active Substance: SUNITINIB MALATE
     Indication: GASTROINTESTINAL STROMAL TUMOUR
     Dosage: UNK
     Route: 048
     Dates: start: 201711, end: 20180820
  3. STIVARGA [Concomitant]
     Active Substance: REGORAFENIB
     Indication: GASTROINTESTINAL CARCINOMA
     Dosage: 160 MG, 1X/DAY
     Route: 048
     Dates: start: 20180905, end: 20181104
  4. CABOMETYX [Suspect]
     Active Substance: CABOZANTINIB S-MALATE
     Indication: GASTROINTESTINAL STROMAL TUMOUR
     Dosage: UNK
     Route: 048
     Dates: start: 201711, end: 20180820
  5. TASIGNA [Concomitant]
     Active Substance: NILOTINIB
     Indication: GASTROINTESTINAL CARCINOMA
     Dosage: UNK
     Route: 048
     Dates: start: 20180925, end: 20181028

REACTIONS (2)
  - Altered state of consciousness [Not Recovered/Not Resolved]
  - Abnormal behaviour [Not Recovered/Not Resolved]

NARRATIVE: CASE EVENT DATE: 20180818
